FAERS Safety Report 10846334 (Version 1)
Quarter: 2015Q1

REPORT INFORMATION
  Report Type: Spontaneous
  Country: US (occurrence: US)
  Receive Date: 20150220
  Receipt Date: 20150220
  Transmission Date: 20150721
  Serious: Yes (Other)
  Sender: FDA-Public Use
  Company Number: US-LUNDBECK-DKLU1108883

PATIENT
  Age: 78 Year
  Sex: Female

DRUGS (1)
  1. NORTHERA [Suspect]
     Active Substance: DROXIDOPA
     Indication: ORTHOSTATIC HYPOTENSION
     Route: 048
     Dates: start: 20141208, end: 201502

REACTIONS (10)
  - Abasia [Unknown]
  - Urine output decreased [Unknown]
  - Urine abnormality [Unknown]
  - Dyspnoea [Unknown]
  - Nausea [Unknown]
  - Loss of consciousness [Unknown]
  - Abdominal pain upper [Unknown]
  - Tinnitus [Unknown]
  - Inner ear inflammation [Unknown]
  - Fall [Unknown]

NARRATIVE: CASE EVENT DATE: 20150201
